FAERS Safety Report 4754630-8 (Version None)
Quarter: 2005Q3

REPORT INFORMATION
  Report Type: 
  Country: None (occurrence: None)
  Receive Date: 20050829
  Receipt Date: 20050820
  Transmission Date: 20060218
  Serious: Yes (Other)
  Sender: FDA-Public Use
  Company Number: GB-GLAXOSMITHKLINE-B0391313A

PATIENT
  Age: 76 Year
  Sex: Male

DRUGS (6)
  1. CHLORAMBUCIL [Suspect]
     Indication: LYMPHOMA
     Dosage: 10MG UNKNOWN
     Route: 048
     Dates: start: 20050615, end: 20050622
  2. NIFEDIPINE [Concomitant]
     Indication: HYPERTENSION
     Dosage: 30MG PER DAY
     Route: 048
     Dates: start: 20000101
  3. BENDROFLUAZIDE [Concomitant]
     Indication: HYPERTENSION
     Dosage: 5MG PER DAY
     Route: 048
     Dates: start: 20000101
  4. ATENOLOL [Concomitant]
     Indication: HYPERTENSION
     Dosage: 25MG PER DAY
     Route: 048
     Dates: start: 20000101
  5. ATORVASTATIN [Concomitant]
     Indication: BLOOD CHOLESTEROL INCREASED
     Dosage: 10MG PER DAY
     Route: 048
     Dates: start: 20000101
  6. METOCLOPRAMIDE [Concomitant]
     Dosage: 1 PER DAY
     Route: 065
     Dates: start: 20050615, end: 20050615

REACTIONS (2)
  - DYSTONIA [None]
  - OCULOGYRATION [None]
